FAERS Safety Report 7308703-6 (Version None)
Quarter: 2011Q1

REPORT INFORMATION
  Report Type: 
  Country: None (occurrence: None)
  Receive Date: 20110223
  Receipt Date: 20110210
  Transmission Date: 20110831
  Serious: Yes (Other)
  Sender: FDA-Public Use
  Company Number: PHHY2011US04231

PATIENT
  Sex: Female

DRUGS (8)
  1. CALTRATE [Concomitant]
  2. ASPIRIN [Concomitant]
  3. LEVOTHYROXINE SODIUM [Concomitant]
  4. SYMBICORT [Concomitant]
  5. TYLENOL [Concomitant]
  6. FISH OIL [Concomitant]
  7. ATENOLOL [Concomitant]
  8. RECLAST [Suspect]
     Dosage: 5 MG
     Dates: start: 20101021

REACTIONS (12)
  - TOOTH LOSS [None]
  - DRY SKIN [None]
  - OEDEMA PERIPHERAL [None]
  - DIPLEGIA [None]
  - LOOSE TOOTH [None]
  - BONE PAIN [None]
  - PAIN [None]
  - MUSCLE SPASMS [None]
  - ABDOMINAL PAIN UPPER [None]
  - JOINT SWELLING [None]
  - DYSPNOEA [None]
  - MOVEMENT DISORDER [None]
